FAERS Safety Report 14579635 (Version 1)
Quarter: 2018Q1

REPORT INFORMATION
  Report Type: Report from Study
  Country: US (occurrence: US)
  Receive Date: 20180227
  Receipt Date: 20180227
  Transmission Date: 20180509
  Serious: No
  Sender: FDA-Public Use
  Company Number: US-CELGENEUS-USA-20180208627

PATIENT

DRUGS (1)
  1. OTEZLA [Suspect]
     Active Substance: APREMILAST
     Indication: PSORIASIS
     Route: 048
     Dates: start: 201604

REACTIONS (9)
  - Tremor [Unknown]
  - Diarrhoea [Recovering/Resolving]
  - Weight decreased [Unknown]
  - Headache [Unknown]
  - Drug dose omission [Unknown]
  - Drug effect decreased [Unknown]
  - Psoriasis [Recovering/Resolving]
  - Muscle spasms [Unknown]
  - Anxiety [Unknown]
